FAERS Safety Report 10044361 (Version 1)
Quarter: 2014Q1

REPORT INFORMATION
  Report Type: Spontaneous
  Country: US (occurrence: None)
  Receive Date: 20140306
  Receipt Date: 20140306
  Transmission Date: 20141002
  Serious: Yes (Hospitalization)
  Sender: FDA-Public Use
  Company Number: 163-21880-13070238

PATIENT
  Age: 90 Year
  Sex: Male
  Weight: 72.58 kg

DRUGS (21)
  1. REVLIMID (LENALIDOMIDE) (10 MILLIGRAM, CAPSULES) [Suspect]
     Indication: MYELODYSPLASTIC SYNDROME
     Route: 048
     Dates: start: 201304
  2. ATARAX (HYDROXYZINE HYDROCHLORIDE) [Concomitant]
  3. FUROSEMIDE (FUROSEMIDE) [Concomitant]
  4. SYNTHROID (LEVOTHYROXINE SODIUM) [Concomitant]
  5. BACTRIM (BACTRIM) [Concomitant]
  6. HYDRALAZINE (HYDRALAZINE) [Concomitant]
  7. VALSART/HCTZ (CO-DIOVAN) [Concomitant]
  8. CLARITIN (LORATADINE) [Concomitant]
  9. LEVEMIR (INSULIN DETEMIR) [Concomitant]
  10. VITAMIN D3 (COLECALCIFEROL) [Concomitant]
  11. COLACE (DOCUSATE SODIUM) [Concomitant]
  12. LEVOTHROID (LEVOTHYROXINE SODIUM) [Concomitant]
  13. WARFARIN (WARFARIN) [Concomitant]
  14. DOCUSATE (DOCUSATE) [Concomitant]
  15. MUCINEX (GUAIFENESIN) [Concomitant]
  16. DUONEB (COMBIVENT) [Concomitant]
  17. NOVOLOG (INSULIN ASPART) [Concomitant]
  18. FERROUS GLUCONATE (FERROUS GLUCONATE) [Concomitant]
  19. FOLIC ACID (FOLIC ACID) [Concomitant]
  20. OMEPRAZOLE (OMEPRAZOLE) [Concomitant]
  21. SULFATRIM (BACTRIM) [Concomitant]

REACTIONS (2)
  - Pneumonia [None]
  - Rash [None]
